FAERS Safety Report 10068035 (Version 2)
Quarter: 2014Q2

REPORT INFORMATION
  Report Type: Spontaneous
  Country: US (occurrence: US)
  Receive Date: 20140409
  Receipt Date: 20140415
  Transmission Date: 20141212
  Serious: Yes (Hospitalization)
  Sender: FDA-Public Use
  Company Number: PHEH2014US006767

PATIENT
  Sex: Female

DRUGS (1)
  1. TOBI [Suspect]

REACTIONS (2)
  - Pseudomonas infection [Unknown]
  - Diabetes mellitus [Unknown]
